FAERS Safety Report 5282110-2 (Version None)
Quarter: 2007Q1

REPORT INFORMATION
  Report Type: 
  Country: None (occurrence: None)
  Receive Date: 20070330
  Receipt Date: 20070320
  Transmission Date: 20070707
  Serious: Yes (Other)
  Sender: FDA-Public Use
  Company Number: BR-PFIZER INC-2006129473

PATIENT
  Age: 45 Year
  Sex: Female

DRUGS (5)
  1. DEPO-PROVERA [Suspect]
     Indication: MENORRHAGIA
     Dates: start: 20060510, end: 20060510
  2. DEPO-PROVERA [Suspect]
     Dates: start: 20060910, end: 20060910
  3. DEPO-PROVERA [Suspect]
     Dates: start: 20061010, end: 20061010
  4. DEPO-PROVERA [Suspect]
     Dates: start: 20061016, end: 20061016
  5. DEPO-PROVERA [Suspect]
     Dates: start: 20061117, end: 20061117

REACTIONS (6)
  - ARTHRALGIA [None]
  - BONE PAIN [None]
  - LOCALISED OEDEMA [None]
  - PAIN IN EXTREMITY [None]
  - UTERINE LEIOMYOMA [None]
  - WEIGHT INCREASED [None]
